FAERS Safety Report 5647266-8 (Version None)
Quarter: 2008Q1

REPORT INFORMATION
  Report Type: 
  Country: None (occurrence: None)
  Receive Date: 20080131
  Receipt Date: 20071204
  Transmission Date: 20080703
  Serious: No
  Sender: FDA-Public Use
  Company Number: 163-21880-07120177

PATIENT
  Age: 51 Year
  Sex: Male

DRUGS (4)
  1. REVLIMID [Suspect]
     Indication: MULTIPLE MYELOMA
     Dosage: 25 MG, DAILY X21 DAYS OUT OF 28, ORAL
     Route: 048
     Dates: start: 20070824, end: 20071101
  2. DEXAMETHASONE TAB [Concomitant]
  3. OSCAL (CALCIUM CARBONATE) [Concomitant]
  4. ASPIRIN [Concomitant]

REACTIONS (1)
  - FLUSHING [None]
